FAERS Safety Report 24695901 (Version 1)
Quarter: 2024Q4

REPORT INFORMATION
  Report Type: Spontaneous
  Country: IT (occurrence: IT)
  Receive Date: 20241204
  Receipt Date: 20241204
  Transmission Date: 20250114
  Serious: Yes (Other)
  Sender: RANBAXY
  Company Number: IT-SUN PHARMACEUTICAL INDUSTRIES LTD-2024R1-482101

PATIENT
  Age: 44 Year
  Sex: Male

DRUGS (2)
  1. TICAGRELOR [Suspect]
     Active Substance: TICAGRELOR
     Indication: Antiplatelet therapy
     Dosage: 90 MILLIGRAM, BID
     Route: 065
  2. ASPIRIN [Suspect]
     Active Substance: ASPIRIN
     Indication: Antiplatelet therapy
     Dosage: 100 MILLIGRAM, DAILY
     Route: 065

REACTIONS (1)
  - Arteriospasm coronary [Recovered/Resolved]
